FAERS Safety Report 7285543-8 (Version None)
Quarter: 2011Q1

REPORT INFORMATION
  Report Type: 
  Country: None (occurrence: None)
  Receive Date: 20110210
  Receipt Date: 20110207
  Transmission Date: 20110831
  Serious: Yes (Hospitalization)
  Sender: FDA-Public Use
  Company Number: CA-ABBOTT-11P-028-0701925-00

PATIENT
  Sex: Female
  Weight: 85 kg

DRUGS (4)
  1. MAVIK [Suspect]
     Indication: ESSENTIAL HYPERTENSION
     Route: 048
     Dates: start: 20100621
  2. ZANTAN [Concomitant]
     Indication: PRODUCT USED FOR UNKNOWN INDICATION
  3. HYDROCHLOROTHIAZIDE [Concomitant]
     Indication: PRODUCT USED FOR UNKNOWN INDICATION
  4. ASPIRIN [Concomitant]
     Indication: PRODUCT USED FOR UNKNOWN INDICATION

REACTIONS (6)
  - PULMONARY EMBOLISM [None]
  - FATIGUE [None]
  - HIATUS HERNIA [None]
  - GASTRIC ULCER [None]
  - DYSPNOEA [None]
  - OEDEMA PERIPHERAL [None]
